FAERS Safety Report 12618096 (Version 1)
Quarter: 2016Q3

REPORT INFORMATION
  Report Type: Spontaneous
  Country: US (occurrence: US)
  Receive Date: 20160803
  Receipt Date: 20160803
  Transmission Date: 20161109
  Serious: No
  Sender: FDA-Public Use
  Company Number: US-JNJFOC-20160723618

PATIENT
  Age: 68 Year
  Sex: Female
  Weight: 39.92 kg

DRUGS (3)
  1. CEFDINIR. [Concomitant]
     Active Substance: CEFDINIR
     Indication: RASH
     Dosage: FOR 7 DAYS
     Route: 065
     Dates: start: 20160719
  2. ZYRTEC [Suspect]
     Active Substance: CETIRIZINE HYDROCHLORIDE
     Indication: RASH
     Route: 048
     Dates: start: 20160719
  3. ZYRTEC [Suspect]
     Active Substance: CETIRIZINE HYDROCHLORIDE
     Route: 048

REACTIONS (2)
  - Off label use [Unknown]
  - Drug ineffective for unapproved indication [Unknown]

NARRATIVE: CASE EVENT DATE: 20160719
